FAERS Safety Report 7875478-1 (Version None)
Quarter: 2011Q4

REPORT INFORMATION
  Report Type: 
  Country: None (occurrence: None)
  Receive Date: 20111031
  Receipt Date: 20111021
  Transmission Date: 20120403
  Serious: Yes (Other)
  Sender: FDA-Public Use
  Company Number: PHEH2011US07624

PATIENT
  Sex: Male

DRUGS (2)
  1. EXJADE [Suspect]
     Dosage: UNK UKN, UNK
     Route: 048
  2. EXJADE [Suspect]
     Dosage: 375 MG, QD
     Route: 048

REACTIONS (2)
  - SINUSITIS [None]
  - EAR INFECTION [None]
